FAERS Safety Report 6538217-2 (Version None)
Quarter: 2010Q1

REPORT INFORMATION
  Report Type: 
  Country: None (occurrence: None)
  Receive Date: 20100114
  Receipt Date: 20100106
  Transmission Date: 20100710
  Serious: Yes (Other)
  Sender: FDA-Public Use
  Company Number: JP-PFIZER INC-2010002605

PATIENT
  Age: 26 Year
  Sex: Female

DRUGS (5)
  1. METHYLPREDNISOLONE AND METHYLPREDNISOLONE ACETATE AND METHYLPREDNISOLO [Suspect]
     Indication: HEPATITIS B
     Dosage: 500 MG, 1X/DAY
     Route: 042
  2. METHYLPREDNISOLONE AND METHYLPREDNISOLONE ACETATE AND METHYLPREDNISOLO [Suspect]
     Dosage: 1000 MG, 1X/DAY
     Route: 042
  3. CYCLOSPORINE [Concomitant]
  4. ENTECAVIR [Concomitant]
     Route: 048
  5. INTERFERON [Concomitant]
     Dosage: UNK MG, 1X/DAY

REACTIONS (1)
  - PNEUMATOSIS INTESTINALIS [None]
